FAERS Safety Report 17429747 (Version 1)
Quarter: 2020Q1

REPORT INFORMATION
  Report Type: Spontaneous
  Country: FR (occurrence: FR)
  Receive Date: 20200218
  Receipt Date: 20200218
  Transmission Date: 20200409
  Serious: Yes (Hospitalization)
  Sender: FDA-Public Use
  Company Number: FR-MYLANLABS-2020M1016489

PATIENT
  Age: 17 Year
  Sex: Male
  Weight: 52 kg

DRUGS (1)
  1. METHOTREXATE MYLAN [Suspect]
     Active Substance: METHOTREXATE SODIUM
     Indication: OSTEOSARCOMA
     Dosage: 18125 MILLIGRAM, CYCLE
     Route: 041
     Dates: start: 20191118

REACTIONS (4)
  - Creatinine renal clearance decreased [Recovered/Resolved]
  - Drug interaction [Unknown]
  - Hepatocellular injury [Recovered/Resolved]
  - Drug clearance decreased [Recovered/Resolved]

NARRATIVE: CASE EVENT DATE: 20191119
